FAERS Safety Report 9439331 (Version 2)
Quarter: 2013Q4

REPORT INFORMATION
  Report Type: Report from Study
  Country: IT (occurrence: IT)
  Receive Date: 20130804
  Receipt Date: 20131202
  Transmission Date: 20140711
  Serious: No
  Sender: FDA-Public Use
  Company Number: PHHY2013IT081082

PATIENT
  Age: 32 Year
  Sex: Female

DRUGS (1)
  1. FTY 720 [Suspect]
     Indication: MULTIPLE SCLEROSIS
     Route: 048

REACTIONS (2)
  - Convulsion [Recovered/Resolved]
  - Syncope [Recovered/Resolved]
